FAERS Safety Report 5772252-7 (Version None)
Quarter: 2008Q2

REPORT INFORMATION
  Report Type: 
  Country: None (occurrence: None)
  Receive Date: 20080613
  Receipt Date: 20080602
  Transmission Date: 20081010
  Serious: Yes (Disabling)
  Sender: FDA-Public Use
  Company Number: PHHY2008IT09923

PATIENT
  Sex: Male

DRUGS (6)
  1. ZOMETA [Suspect]
     Indication: MULTIPLE MYELOMA
     Dosage: 4 MG, QMO
     Route: 042
     Dates: start: 20040101, end: 20040601
  2. ZOMETA [Suspect]
     Dosage: UNK
     Dates: start: 20050101, end: 20050801
  3. ZOMETA [Suspect]
     Dosage: UNK
     Dates: start: 20060101, end: 20060401
  4. AREDIA [Suspect]
     Indication: MULTIPLE MYELOMA
     Dosage: 90 MG, QMO
     Route: 042
     Dates: start: 20010101
  5. FOSAMAX [Suspect]
  6. ACECLOFENAC [Concomitant]

REACTIONS (1)
  - OSTEONECROSIS [None]
